FAERS Safety Report 20070626 (Version 1)
Quarter: 2021Q4

REPORT INFORMATION
  Report Type: Spontaneous
  Country: CA (occurrence: CA)
  Receive Date: 20211115
  Receipt Date: 20211115
  Transmission Date: 20220303
  Serious: Yes (Other)
  Sender: FDA-Public Use
  Company Number: CA-PFIZER INC-202101448071

PATIENT
  Age: 38 Year
  Sex: Female

DRUGS (2)
  1. DOSTINEX [Suspect]
     Active Substance: CABERGOLINE
     Dosage: 0.5 MG, DAILY
     Dates: start: 20211015
  2. LETROZOLE [Concomitant]
     Active Substance: LETROZOLE

REACTIONS (5)
  - Hallucination, auditory [Recovering/Resolving]
  - Vision blurred [Recovering/Resolving]
  - Palpitations [Recovering/Resolving]
  - Anxiety [Unknown]
  - Panic disorder [Recovering/Resolving]

NARRATIVE: CASE EVENT DATE: 20211021
